FAERS Safety Report 24098043 (Version 1)
Quarter: 2024Q3

REPORT INFORMATION
  Report Type: Spontaneous
  Country: US (occurrence: None)
  Receive Date: 20240716
  Receipt Date: 20240716
  Transmission Date: 20241016
  Serious: Yes (Other)
  Sender: Public
  Company Number: None

PATIENT
  Age: 7 Year
  Sex: Male
  Weight: 22.5 kg

DRUGS (1)
  1. AZSTARYS [Suspect]
     Active Substance: DEXMETHYLPHENIDATE HYDROCHLORIDE\SERDEXMETHYLPHENIDATE CHLORIDE
     Indication: Attention deficit hyperactivity disorder
     Dosage: OTHER QUANTITY : 1 CAPSULE(S);?
     Route: 048
     Dates: start: 20240629, end: 20240630

REACTIONS (15)
  - Product preparation issue [None]
  - Dyskinesia [None]
  - Staring [None]
  - Agitation [None]
  - Emotional distress [None]
  - Panic attack [None]
  - Feelings of worthlessness [None]
  - Repetitive speech [None]
  - Grandiosity [None]
  - Speech disorder [None]
  - Negative thoughts [None]
  - Crying [None]
  - Insomnia [None]
  - Mania [None]
  - Hallucination, visual [None]

NARRATIVE: CASE EVENT DATE: 20240629
